FAERS Safety Report 7139209-5 (Version None)
Quarter: 2010Q4

REPORT INFORMATION
  Report Type: 
  Country: None (occurrence: None)
  Receive Date: 20101202
  Receipt Date: 20101202
  Transmission Date: 20110411
  Serious: Yes (Hospitalization)
  Sender: FDA-Public Use
  Company Number: None

PATIENT
  Age: 46 Year
  Sex: Female
  Weight: 56.6996 kg

DRUGS (3)
  1. DARVOCET [Suspect]
     Indication: PAIN
     Dosage: DON'T REMEMBER CVS HAS INFO
     Dates: start: 20100819, end: 20100919
  2. DARVOCET [Concomitant]
  3. PROPOXYPHENE HYDROCHLORIDE [Concomitant]

REACTIONS (2)
  - ARRHYTHMIA [None]
  - PALPITATIONS [None]
